FAERS Safety Report 25944749 (Version 1)
Quarter: 2025Q4

REPORT INFORMATION
  Report Type: Spontaneous
  Country: US (occurrence: US)
  Receive Date: 20251021
  Receipt Date: 20251021
  Transmission Date: 20260117
  Serious: No
  Sender: Phathom Pharmaceuticals
  Company Number: US-PHATHOM PHARMACEUTICALS INC.-2025PHT01901

PATIENT
  Age: 80 Year
  Sex: Female

DRUGS (11)
  1. VOQUEZNA [Suspect]
     Active Substance: VONOPRAZAN FUMARATE
     Indication: Gastrooesophageal reflux disease
     Dosage: 20 MG, 1X/DAY
     Route: 048
     Dates: start: 20250702, end: 20250715
  2. CYANOCOBALAMIN [Concomitant]
     Active Substance: CYANOCOBALAMIN
  3. VITAMIN C [Concomitant]
     Active Substance: ASCORBIC ACID
  4. NOVOLOG [Concomitant]
     Active Substance: INSULIN ASPART
  5. BASAGLAR KWIKPEN [Concomitant]
     Active Substance: INSULIN GLARGINE
  6. FERROUS SULFATE [Concomitant]
     Active Substance: FERROUS SULFATE
  7. VITAMIN D3 [Concomitant]
     Active Substance: CHOLECALCIFEROL
  8. ATORVASTATIN [Concomitant]
     Active Substance: ATORVASTATIN
  9. LOSARTAN AND HYDROCHLOROTHIAZIDE [Concomitant]
     Active Substance: HYDROCHLOROTHIAZIDE\LOSARTAN POTASSIUM
  10. AMLODIPINE [Concomitant]
     Active Substance: AMLODIPINE BESYLATE
  11. METOPROLOL TARTRATE [Concomitant]
     Active Substance: METOPROLOL TARTRATE

REACTIONS (3)
  - Back pain [Unknown]
  - Hypophagia [Unknown]
  - Abdominal discomfort [Unknown]

NARRATIVE: CASE EVENT DATE: 20250701
